FAERS Safety Report 9962755 (Version 1)
Quarter: 2014Q1

REPORT INFORMATION
  Report Type: Report from Study
  Country: US (occurrence: US)
  Receive Date: 20140305
  Receipt Date: 20140305
  Transmission Date: 20141002
  Serious: No
  Sender: FDA-Public Use
  Company Number: US-ABBVIE-13P-163-1112562-00

PATIENT
  Age: 62 Year
  Sex: Female

DRUGS (14)
  1. HUMIRA [Suspect]
     Indication: COMPLEX REGIONAL PAIN SYNDROME
     Route: 058
     Dates: start: 20130517, end: 20130628
  2. HUMIRA [Suspect]
     Route: 058
     Dates: start: 20130628
  3. GABAPENTIN [Concomitant]
     Indication: PRODUCT USED FOR UNKNOWN INDICATION
     Dosage: 300MG DAILY
  4. METHOTREXATE [Concomitant]
     Indication: PRODUCT USED FOR UNKNOWN INDICATION
  5. HYDROXYCHLOROQUINE [Concomitant]
     Indication: COMPLEX REGIONAL PAIN SYNDROME
  6. HYDROCODONE W/ACETYLSALICYLIC ACID [Concomitant]
     Indication: PAIN
     Dosage: 1-2 TABS
  7. LIPITOR [Concomitant]
     Indication: BLOOD CHOLESTEROL INCREASED
  8. AMLODIPINE [Concomitant]
     Indication: HYPERTENSION
  9. INDOMETHACIN [Concomitant]
     Indication: GOUT
  10. CALCIUM [Concomitant]
     Indication: VITAMIN SUPPLEMENTATION
  11. POTASSIUM [Concomitant]
     Indication: VITAMIN SUPPLEMENTATION
  12. FOLIC ACID [Concomitant]
     Indication: VITAMIN SUPPLEMENTATION
  13. BABY ASPIRIN [Concomitant]
     Indication: PROPHYLAXIS
  14. TRIAMTERENE [Concomitant]
     Indication: HYPERTENSION

REACTIONS (1)
  - Complex regional pain syndrome [Not Recovered/Not Resolved]
